FAERS Safety Report 16989005 (Version 1)
Quarter: 2019Q4

REPORT INFORMATION
  Report Type: Report from Study
  Country: None (occurrence: IT)
  Receive Date: 20191104
  Receipt Date: 20191104
  Transmission Date: 20200122
  Serious: Yes (Hospitalization)
  Sender: FDA-Public Use
  Company Number: IT-ABBVIE-19K-083-2985671-00

PATIENT
  Age: 75 Year
  Sex: Female

DRUGS (1)
  1. DUODOPA [Suspect]
     Active Substance: CARBIDOPA\LEVODOPA
     Indication: PARKINSON^S DISEASE
     Dosage: MD: 1,6+3 CR: 2,5 ED: 0,9
     Route: 050
     Dates: start: 20190503

REACTIONS (1)
  - Obstruction [Recovered/Resolved]

NARRATIVE: CASE EVENT DATE: 20191007
